FAERS Safety Report 24970758 (Version 1)
Quarter: 2025Q1

REPORT INFORMATION
  Report Type: Spontaneous
  Country: US (occurrence: US)
  Receive Date: 20250214
  Receipt Date: 20250214
  Transmission Date: 20250408
  Serious: No
  Sender: THEA PHARMA INC.
  Company Number: US-THEA-2024002596

PATIENT
  Sex: Female

DRUGS (3)
  1. COSOPT PF [Suspect]
     Active Substance: DORZOLAMIDE HYDROCHLORIDE\TIMOLOL MALEATE
     Indication: Glaucoma
     Route: 047
  2. BRIMONIDINE TARTRATE [Suspect]
     Active Substance: BRIMONIDINE TARTRATE
     Indication: Glaucoma
     Dates: start: 2024
  3. BOTOX [Suspect]
     Active Substance: ONABOTULINUMTOXINA
     Indication: Eyelid disorder

REACTIONS (2)
  - Swelling of eyelid [Unknown]
  - Ocular hyperaemia [Unknown]
